FAERS Safety Report 7258959-3 (Version None)
Quarter: 2011Q1

REPORT INFORMATION
  Report Type: 
  Country: None (occurrence: None)
  Receive Date: 20110129
  Receipt Date: 20100623
  Transmission Date: 20110831
  Serious: No
  Sender: FDA-Public Use
  Company Number: US-ABBOTT-10P-163-0652990-00

PATIENT
  Sex: Male

DRUGS (2)
  1. HUMIRA [Suspect]
  2. HUMIRA [Suspect]
     Indication: CROHN'S DISEASE
     Dates: start: 20100622, end: 20100622

REACTIONS (10)
  - HYPOAESTHESIA [None]
  - ABDOMINAL DISCOMFORT [None]
  - HYPERHIDROSIS [None]
  - BLOOD PRESSURE DECREASED [None]
  - INJECTION SITE PAIN [None]
  - PALLOR [None]
  - PARAESTHESIA [None]
  - NAUSEA [None]
  - DIZZINESS [None]
  - TUNNEL VISION [None]
